FAERS Safety Report 14689052 (Version 1)
Quarter: 2018Q1

REPORT INFORMATION
  Report Type: Spontaneous
  Country: US (occurrence: US)
  Receive Date: 20180327
  Receipt Date: 20180327
  Transmission Date: 20180509
  Serious: Yes (Disabling)
  Sender: FDA-Public Use
  Company Number: None

PATIENT
  Age: 40 Year
  Sex: Female
  Weight: 59.85 kg

DRUGS (2)
  1. PROGESTRONE TOPICAL CREAM [Concomitant]
  2. CIPRO [Suspect]
     Active Substance: CIPROFLOXACIN HYDROCHLORIDE
     Indication: RENAL LITHIASIS PROPHYLAXIS
     Route: 048

REACTIONS (2)
  - Back pain [None]
  - Ligament sprain [None]

NARRATIVE: CASE EVENT DATE: 20180319
